FAERS Safety Report 9137316 (Version 1)
Quarter: 2013Q1

REPORT INFORMATION
  Report Type: Spontaneous
  Country: IT (occurrence: IT)
  Receive Date: 20130304
  Receipt Date: 20130304
  Transmission Date: 20140127
  Serious: Yes (Other)
  Sender: FDA-Public Use
  Company Number: IT-BRISTOL-MYERS SQUIBB COMPANY-17407164

PATIENT
  Age: 49 Year
  Sex: Female

DRUGS (2)
  1. PACLITAXEL [Suspect]
     Indication: BREAST CANCER
     Dosage: PACLITAXEL SOLUTION FOR INFUSION
     Route: 042
     Dates: start: 20121116, end: 20130208
  2. AVASTIN [Interacting]
     Indication: BREAST CANCER
     Dosage: AVASTIN SOLUTION FOR INFUSION
     Route: 042
     Dates: start: 20121116, end: 20130125

REACTIONS (2)
  - Hypertension [Recovering/Resolving]
  - Drug interaction [Unknown]
